FAERS Safety Report 26045169 (Version 3)
Quarter: 2025Q4

REPORT INFORMATION
  Report Type: Spontaneous
  Country: EU (occurrence: EU)
  Receive Date: 20251114
  Receipt Date: 20251204
  Transmission Date: 20260118
  Serious: Yes (Death, Hospitalization, Other)
  Sender: ROCHE
  Company Number: EU-ROCHE-10000432248

PATIENT
  Age: 68 Year
  Sex: Female
  Weight: 63.5 kg

DRUGS (19)
  1. GLOFITAMAB [Suspect]
     Active Substance: GLOFITAMAB
     Indication: Diffuse large B-cell lymphoma
     Dosage: C1D8
     Route: 042
  2. GLOFITAMAB [Suspect]
     Active Substance: GLOFITAMAB
     Dosage: C1D15
     Route: 065
  3. GLOFITAMAB [Suspect]
     Active Substance: GLOFITAMAB
     Dosage: C1D22
     Route: 065
  4. GLOFITAMAB [Suspect]
     Active Substance: GLOFITAMAB
     Route: 065
     Dates: start: 20250724, end: 20250804
  5. RITUXIMAB [Suspect]
     Active Substance: RITUXIMAB
     Indication: Plasma cell myeloma
     Route: 065
  6. RITUXIMAB [Suspect]
     Active Substance: RITUXIMAB
     Indication: B-cell lymphoma
  7. DARZALEX [Suspect]
     Active Substance: DARATUMUMAB
     Indication: B-cell lymphoma
     Route: 065
  8. DARZALEX [Suspect]
     Active Substance: DARATUMUMAB
     Indication: Plasma cell myeloma
  9. VELCADE [Suspect]
     Active Substance: BORTEZOMIB
     Indication: B-cell lymphoma
     Route: 065
  10. VELCADE [Suspect]
     Active Substance: BORTEZOMIB
     Indication: Plasma cell myeloma
  11. REVLIMID [Suspect]
     Active Substance: LENALIDOMIDE
     Indication: B-cell lymphoma
     Route: 065
  12. REVLIMID [Suspect]
     Active Substance: LENALIDOMIDE
     Indication: Plasma cell myeloma
  13. GEMCITABINE HYDROCHLORIDE\OXALIPLATIN [Suspect]
     Active Substance: GEMCITABINE HYDROCHLORIDE\OXALIPLATIN
     Indication: B-cell lymphoma
     Route: 065
  14. GEMCITABINE HYDROCHLORIDE\OXALIPLATIN [Suspect]
     Active Substance: GEMCITABINE HYDROCHLORIDE\OXALIPLATIN
     Indication: Plasma cell myeloma
  15. GEMCITABINE HYDROCHLORIDE\OXALIPLATIN [Suspect]
     Active Substance: GEMCITABINE HYDROCHLORIDE\OXALIPLATIN
     Indication: B-cell lymphoma
     Route: 065
  16. GEMCITABINE HYDROCHLORIDE\OXALIPLATIN [Suspect]
     Active Substance: GEMCITABINE HYDROCHLORIDE\OXALIPLATIN
     Indication: Plasma cell myeloma
  17. APIXABAN [Concomitant]
     Active Substance: APIXABAN
  18. TAMSULOSIN [Concomitant]
     Active Substance: TAMSULOSIN
  19. GAVISCON [Concomitant]
     Active Substance: ALUMINUM HYDROXIDE\MAGNESIUM CARBONATE

REACTIONS (6)
  - Gastric perforation [Fatal]
  - Septic shock [Unknown]
  - Peritonitis [Fatal]
  - Malnutrition [Unknown]
  - Acute respiratory distress syndrome [Unknown]
  - Pneumonia [Unknown]

NARRATIVE: CASE EVENT DATE: 20250831
